FAERS Safety Report 15195989 (Version 3)
Quarter: 2018Q3

REPORT INFORMATION
  Report Type: Spontaneous
  Country: US (occurrence: US)
  Receive Date: 20180725
  Receipt Date: 20180904
  Transmission Date: 20181010
  Serious: Yes (Other)
  Sender: FDA-Public Use
  Company Number: US-OTSUKA-2018_025082

PATIENT
  Sex: Female

DRUGS (5)
  1. ABILIFY MAINTENA [Suspect]
     Active Substance: ARIPIPRAZOLE
     Indication: PRODUCT USED FOR UNKNOWN INDICATION
     Dosage: 400 MG, QM
     Route: 065
     Dates: start: 20170710
  2. ABILIFY MAINTENA [Suspect]
     Active Substance: ARIPIPRAZOLE
     Dosage: 300 MG, QM
     Route: 065
     Dates: start: 20180123, end: 20180718
  3. ABILIFY [Suspect]
     Active Substance: ARIPIPRAZOLE
     Indication: PRODUCT USED FOR UNKNOWN INDICATION
     Dosage: 10 MG, UNK
     Route: 048
  4. ABILIFY [Suspect]
     Active Substance: ARIPIPRAZOLE
     Dosage: 15 MG, UNK
     Route: 048
  5. CLONAZEPAM. [Concomitant]
     Active Substance: CLONAZEPAM
     Indication: PRODUCT USED FOR UNKNOWN INDICATION
     Dosage: UNK
     Route: 065

REACTIONS (17)
  - Emotional distress [Unknown]
  - Mood swings [Unknown]
  - Social avoidant behaviour [Unknown]
  - Cervix cerclage procedure [Unknown]
  - Premature labour [Unknown]
  - Cervix operation [Unknown]
  - Abortion spontaneous [Unknown]
  - Feeling abnormal [Unknown]
  - Agitation [Unknown]
  - Treatment noncompliance [Unknown]
  - Smear cervix abnormal [Unknown]
  - Umbilical cord abnormality [Unknown]
  - Maternal exposure during pregnancy [Unknown]
  - Insurance issue [Unknown]
  - Polycystic ovaries [Unknown]
  - Hallucination [Unknown]
  - Ectopic pregnancy [Unknown]
